FAERS Safety Report 24667025 (Version 1)
Quarter: 2024Q4

REPORT INFORMATION
  Report Type: Spontaneous
  Country: US (occurrence: US)
  Receive Date: 20241126
  Receipt Date: 20241126
  Transmission Date: 20250115
  Serious: No
  Sender: PFIZER
  Company Number: US-PFIZER INC-PV202400151692

PATIENT
  Age: 61 Year
  Sex: Female

DRUGS (5)
  1. TUKYSA [Suspect]
     Active Substance: TUCATINIB
     Dosage: 2 TABLETS TWICE DAILY
  2. METHYLPREDNISOLONE [Suspect]
     Active Substance: METHYLPREDNISOLONE
     Indication: Muscle spasms
     Dosage: 4 MG
  3. LIDOCAINE [Concomitant]
     Active Substance: LIDOCAINE
     Indication: Muscle spasms
     Dosage: 5 %
  4. MELOXICAM [Concomitant]
     Active Substance: MELOXICAM
     Indication: Muscle spasms
     Dosage: 7.5 MG
  5. METHOCARBAMOL [Concomitant]
     Active Substance: METHOCARBAMOL
     Indication: Muscle spasms
     Dosage: 500 MG

REACTIONS (4)
  - Hypertension [Unknown]
  - Arthralgia [Unknown]
  - Pain in extremity [Unknown]
  - Back pain [Unknown]
